FAERS Safety Report 25819777 (Version 4)
Quarter: 2025Q4

REPORT INFORMATION
  Report Type: Spontaneous
  Country: US (occurrence: US)
  Receive Date: 20250918
  Receipt Date: 20251231
  Transmission Date: 20260117
  Serious: No
  Sender: NEUROCRINE BIOSCIENCES
  Company Number: US-NBI-NBI-US-3454-2025

PATIENT
  Sex: Male
  Weight: 68.934 kg

DRUGS (6)
  1. CRENESSITY [Suspect]
     Active Substance: CRINECERFONT
     Indication: Adrenogenital syndrome
     Dosage: 200 MILLIGRAM, BID, WITH FOOD
     Route: 061
  2. CRENESSITY [Suspect]
     Active Substance: CRINECERFONT
     Dosage: 100 MILLIGRAM, BID, WITH FOOD
     Route: 061
  3. CRENESSITY [Suspect]
     Active Substance: CRINECERFONT
     Dosage: 50 MILLIGRAM (2 50 MG CAPSULES), BID
     Route: 061
  4. FLUDROCORTISONE [Concomitant]
     Active Substance: FLUDROCORTISONE
     Dosage: 0.1 MILLIGRAM, QD IN THE MORNING (AM)
     Route: 065
  5. PREDNISONE [Concomitant]
     Active Substance: PREDNISONE
     Dosage: 5 MILLIGRAM A DAY (1.5 IN THE MORNING (AM), 2.5 MG  IN THE AFTERNOON)
  6. HYDROCORTISONE [Concomitant]
     Active Substance: HYDROCORTISONE

REACTIONS (4)
  - Diarrhoea [Recovered/Resolved]
  - Diarrhoea [Unknown]
  - Wrong dose [Unknown]
  - Overdose [Unknown]
